FAERS Safety Report 4459307-4 (Version None)
Quarter: 2004Q3

REPORT INFORMATION
  Report Type: 
  Country: None (occurrence: None)
  Receive Date: 20040922
  Receipt Date: 20040922
  Transmission Date: 20050211
  Serious: No
  Sender: FDA-Public Use
  Company Number: None

PATIENT
  Age: 35 Year
  Sex: Male

DRUGS (1)
  1. MEFLOQUINE HCL [Suspect]
     Indication: MALARIA PROPHYLAXIS
     Dosage: 250 MG Q7D ORAL
     Route: 048
     Dates: start: 20040612, end: 20040613

REACTIONS (7)
  - DRUG TOXICITY [None]
  - HEADACHE [None]
  - MEDICATION ERROR [None]
  - PARANOIA [None]
  - TREMOR [None]
  - VERTIGO [None]
  - VISION BLURRED [None]
